FAERS Safety Report 17114772 (Version 1)
Quarter: 2019Q4

REPORT INFORMATION
  Report Type: Spontaneous
  Country: US (occurrence: US)
  Receive Date: 20191112
  Receipt Date: 20191112
  Transmission Date: 20200122
  Serious: Yes (Hospitalization)
  Sender: FDA-Public Use
  Company Number: None

PATIENT
  Age: 48 Year
  Sex: Female

DRUGS (7)
  1. VITAMIN A [Concomitant]
     Active Substance: VITAMIN A
  2. HUMIRA [Suspect]
     Active Substance: ADALIMUMAB
     Dosage: ?          OTHER FREQUENCY:1 X EVERY 14 DAYS;?
     Route: 058
  3. OMEPRAZOLE. [Concomitant]
     Active Substance: OMEPRAZOLE
  4. DULOXETINE. [Concomitant]
     Active Substance: DULOXETINE
  5. METHOTREXATE. [Concomitant]
     Active Substance: METHOTREXATE
  6. ACETAZOLAMID [Concomitant]
     Active Substance: ACETAZOLAMIDE
  7. VITAMIN D [Concomitant]
     Active Substance: VITAMIN D NOS

REACTIONS (1)
  - Gastritis erosive [None]

NARRATIVE: CASE EVENT DATE: 20191101
